FAERS Safety Report 5443986-9 (Version None)
Quarter: 2007Q3

REPORT INFORMATION
  Report Type: 
  Country: None (occurrence: None)
  Receive Date: 20070905
  Receipt Date: 20070827
  Transmission Date: 20080115
  Serious: Yes (Death, Hospitalization)
  Sender: FDA-Public Use
  Company Number: BR-ABBOTT-07P-020-0378032-00

PATIENT
  Sex: Male
  Weight: 53 kg

DRUGS (8)
  1. RITONAVIR SOFT GELATIN CAPSULES [Suspect]
     Indication: HIV INFECTION
     Route: 048
  2. TMC114 [Concomitant]
     Indication: HIV INFECTION
     Route: 048
     Dates: start: 20050331
  3. TENOFOVIR DISOPROXIL FUMARATE [Concomitant]
     Indication: DRUG USE FOR UNKNOWN INDICATION
     Route: 048
     Dates: start: 20060814
  4. DIDANOSINE [Concomitant]
     Indication: HIV INFECTION
     Route: 048
     Dates: start: 20060814
  5. SULFAMETHOXAZOLE [Concomitant]
     Indication: INFECTION PROPHYLAXIS
     Route: 048
  6. FORMOTEROL FUMARATE [Concomitant]
     Indication: EMPHYSEMA
     Route: 055
     Dates: start: 20070405
  7. BUDESONIDE [Concomitant]
     Indication: EMPHYSEMA
     Route: 055
     Dates: start: 20070405
  8. SIBUTRAMINE [Concomitant]
     Indication: DEPRESSION
     Route: 048
     Dates: start: 20070418

REACTIONS (4)
  - BLOOD BICARBONATE DECREASED [None]
  - BLOOD CREATININE INCREASED [None]
  - BLOOD UREA INCREASED [None]
  - DEATH [None]
